FAERS Safety Report 8760371 (Version 2)
Quarter: 2012Q4

REPORT INFORMATION
  Report Type: Spontaneous
  Country: CA (occurrence: None)
  Receive Date: 20120820
  Receipt Date: 20120924
  Transmission Date: 20130627
  Serious: Yes (Hospitalization, Other)
  Sender: FDA-Public Use
  Company Number: ADR-2012-01500

PATIENT
  Sex: Male

DRUGS (1)
  1. BACLOFEN [Suspect]
     Route: 037

REACTIONS (11)
  - Drug withdrawal syndrome [None]
  - Muscle spasticity [None]
  - Hyperhidrosis [None]
  - Fall [None]
  - Accident [None]
  - Ecchymosis [None]
  - Wound [None]
  - Oedema peripheral [None]
  - Joint swelling [None]
  - Device power source issue [None]
  - Device physical property issue [None]
